FAERS Safety Report 20172365 (Version 1)
Quarter: 2021Q4

REPORT INFORMATION
  Report Type: Spontaneous
  Country: RU (occurrence: RU)
  Receive Date: 20211210
  Receipt Date: 20211210
  Transmission Date: 20220304
  Serious: Yes (Hospitalization)
  Sender: FDA-Public Use
  Company Number: RUS-CUMBERLAND-2021-RU-000001

PATIENT
  Age: 46 Year
  Sex: Male

DRUGS (6)
  1. REDITREX [Suspect]
     Active Substance: METHOTREXATE
  2. AZITHROMYCIN [Concomitant]
     Active Substance: AZITHROMYCIN
  3. BARICITINIB [Concomitant]
     Active Substance: BARICITINIB
  4. CEFTRIAXONE [Concomitant]
     Active Substance: CEFTRIAXONE
  5. DEXAMETHASONE [Concomitant]
     Active Substance: DEXAMETHASONE
  6. HYDROXYCHLOROQUINE [Concomitant]
     Active Substance: HYDROXYCHLOROQUINE

REACTIONS (2)
  - COVID-19 [Recovered/Resolved]
  - Erythrodermic psoriasis [Recovered/Resolved]
